FAERS Safety Report 4873347-2 (Version None)
Quarter: 2006Q1

REPORT INFORMATION
  Report Type: 
  Country: None (occurrence: None)
  Receive Date: 20060105
  Receipt Date: 20051226
  Transmission Date: 20060701
  Serious: Yes (Hospitalization)
  Sender: FDA-Public Use
  Company Number: FR-ROCHE-430070

PATIENT
  Age: 42 Year
  Sex: Female

DRUGS (3)
  1. RIVOTRIL [Suspect]
     Indication: SPINAL DISORDER
     Dosage: INDICATION REPORTED AS: TENDINOUS SPINAL INSERTION DISEASE.
     Route: 048
     Dates: start: 20050530
  2. ACETAMINOPHEN [Concomitant]
     Indication: MYOSITIS
     Route: 048
     Dates: start: 20030407, end: 20031212
  3. AVONEX [Concomitant]
     Indication: MULTIPLE SCLEROSIS
     Route: 042
     Dates: start: 20030115, end: 20050601

REACTIONS (2)
  - BODY DYSMORPHIC DISORDER [None]
  - DISSOCIATION [None]
